FAERS Safety Report 7237977-5 (Version None)
Quarter: 2011Q1

REPORT INFORMATION
  Report Type: 
  Country: None (occurrence: None)
  Receive Date: 20110121
  Receipt Date: 20110119
  Transmission Date: 20110831
  Serious: Yes (Hospitalization)
  Sender: FDA-Public Use
  Company Number: GXKR2010DE14277

PATIENT
  Sex: Female
  Weight: 67 kg

DRUGS (2)
  1. XYLONEST [Concomitant]
  2. TRIAMHEXAL [Suspect]
     Indication: NEUROMUSCULAR BLOCKADE
     Dosage: UNK

REACTIONS (9)
  - DEAFNESS [None]
  - URTICARIA [None]
  - ERYTHEMA [None]
  - SWELLING [None]
  - VISUAL ACUITY REDUCED [None]
  - RESTLESSNESS [None]
  - TACHYCARDIA [None]
  - CHEST DISCOMFORT [None]
  - SNEEZING [None]
